FAERS Safety Report 22083096 (Version 1)
Quarter: 2023Q1

REPORT INFORMATION
  Report Type: Spontaneous
  Country: NO (occurrence: NO)
  Receive Date: 20230310
  Receipt Date: 20230310
  Transmission Date: 20230418
  Serious: Yes (Hospitalization)
  Sender: FDA-Public Use
  Company Number: None

PATIENT
  Age: 45 Year
  Sex: Female

DRUGS (1)
  1. PREDNISOLONE [Suspect]
     Active Substance: PREDNISOLONE
     Indication: Sinusitis
     Route: 065
     Dates: start: 20230213, end: 20230214

REACTIONS (9)
  - Hypoaesthesia [Recovering/Resolving]
  - Asthenia [Recovering/Resolving]
  - Heart rate decreased [Recovering/Resolving]
  - Lethargy [Recovering/Resolving]
  - Muscular weakness [Recovering/Resolving]
  - Spinal pain [Recovering/Resolving]
  - Muscle contractions involuntary [Recovering/Resolving]
  - Musculoskeletal stiffness [Recovering/Resolving]
  - Poor peripheral circulation [Recovering/Resolving]

NARRATIVE: CASE EVENT DATE: 20230213
